FAERS Safety Report 18500656 (Version 2)
Quarter: 2020Q4

REPORT INFORMATION
  Report Type: Report from Study
  Country: US (occurrence: US)
  Receive Date: 20201113
  Receipt Date: 20201215
  Transmission Date: 20210114
  Serious: Yes (Hospitalization, Other)
  Sender: FDA-Public Use
  Company Number: US-SHIRE-US202009878

PATIENT
  Sex: Female

DRUGS (16)
  1. TEDUGLUTIDE [Suspect]
     Active Substance: TEDUGLUTIDE
     Indication: SHORT-BOWEL SYNDROME
     Dosage: 2.2 MILLIGRAM, QD
     Route: 058
     Dates: start: 20190225
  2. TEDUGLUTIDE [Suspect]
     Active Substance: TEDUGLUTIDE
     Dosage: 0.05 MILLIGRAM, QD
     Route: 058
     Dates: start: 20200101
  3. TEDUGLUTIDE [Suspect]
     Active Substance: TEDUGLUTIDE
     Indication: SHORT-BOWEL SYNDROME
     Dosage: 2.2 MILLIGRAM, QD
     Route: 058
     Dates: start: 20190225
  4. TEDUGLUTIDE [Suspect]
     Active Substance: TEDUGLUTIDE
     Indication: DIARRHOEA
     Dosage: 2.2 MILLIGRAM, QD
     Route: 058
     Dates: start: 20200211
  5. TEDUGLUTIDE [Suspect]
     Active Substance: TEDUGLUTIDE
     Dosage: 2.2 MILLIGRAM, QD
     Route: 058
     Dates: start: 20200318
  6. TEDUGLUTIDE [Suspect]
     Active Substance: TEDUGLUTIDE
     Dosage: 2.2 MILLIGRAM, QD
     Route: 058
     Dates: start: 20200318
  7. TEDUGLUTIDE [Suspect]
     Active Substance: TEDUGLUTIDE
     Dosage: 0.05 MILLIGRAM, QD
     Route: 058
     Dates: start: 20200101
  8. TEDUGLUTIDE [Suspect]
     Active Substance: TEDUGLUTIDE
     Indication: DIARRHOEA
     Dosage: 2.2 MILLIGRAM, QD
     Route: 058
     Dates: start: 20200211
  9. TEDUGLUTIDE [Suspect]
     Active Substance: TEDUGLUTIDE
     Dosage: 0.05 MILLIGRAM, QD
     Route: 058
     Dates: start: 20200101
  10. TEDUGLUTIDE [Suspect]
     Active Substance: TEDUGLUTIDE
     Dosage: 0.05 MILLIGRAM, QD
     Route: 058
     Dates: start: 20200101
  11. TEDUGLUTIDE [Suspect]
     Active Substance: TEDUGLUTIDE
     Indication: DIARRHOEA
     Dosage: 2.2 MILLIGRAM, QD
     Route: 058
     Dates: start: 20200211
  12. TEDUGLUTIDE [Suspect]
     Active Substance: TEDUGLUTIDE
     Indication: DIARRHOEA
     Dosage: 2.2 MILLIGRAM, QD
     Route: 058
     Dates: start: 20200211
  13. TEDUGLUTIDE [Suspect]
     Active Substance: TEDUGLUTIDE
     Indication: SHORT-BOWEL SYNDROME
     Dosage: 2.2 MILLIGRAM, QD
     Route: 058
     Dates: start: 20190225
  14. TEDUGLUTIDE [Suspect]
     Active Substance: TEDUGLUTIDE
     Dosage: 2.2 MILLIGRAM, QD
     Route: 058
     Dates: start: 20200318
  15. TEDUGLUTIDE [Suspect]
     Active Substance: TEDUGLUTIDE
     Dosage: 2.2 MILLIGRAM, QD
     Route: 058
     Dates: start: 20200318
  16. TEDUGLUTIDE [Suspect]
     Active Substance: TEDUGLUTIDE
     Indication: SHORT-BOWEL SYNDROME
     Dosage: 2.2 MILLIGRAM, QD
     Route: 058
     Dates: start: 20190225

REACTIONS (3)
  - Thrombosis [Recovering/Resolving]
  - Product dose omission issue [Unknown]
  - Myocardial infarction [Unknown]
